FAERS Safety Report 4999607-2 (Version None)
Quarter: 2006Q2

REPORT INFORMATION
  Report Type: 
  Country: None (occurrence: None)
  Receive Date: 20060511
  Receipt Date: 20050930
  Transmission Date: 20061013
  Serious: Yes (Death, Hospitalization, Other)
  Sender: FDA-Public Use
  Company Number: US-MERCK-0510USA01389

PATIENT
  Age: 79 Year
  Sex: Female
  Weight: 93 kg

DRUGS (2)
  1. VIOXX [Suspect]
     Indication: ARTHRITIS
     Route: 048
     Dates: start: 20000101, end: 20000419
  2. TYLENOL (CAPLET) [Concomitant]
     Route: 065

REACTIONS (13)
  - AORTIC VALVE SCLEROSIS [None]
  - CARDIAC ARREST [None]
  - CHRONIC RESPIRATORY FAILURE [None]
  - COR PULMONALE [None]
  - DEATH [None]
  - DEEP VEIN THROMBOSIS [None]
  - DRUG TOXICITY [None]
  - HYPERCAPNIA [None]
  - HYPOXIA [None]
  - RESPIRATORY FAILURE [None]
  - SINUSITIS [None]
  - STUPOR [None]
  - VENTRICULAR TACHYCARDIA [None]
